FAERS Safety Report 16644100 (Version 1)
Quarter: 2019Q3

REPORT INFORMATION
  Report Type: Report from Study
  Country: ES (occurrence: ES)
  Receive Date: 20190729
  Receipt Date: 20190729
  Transmission Date: 20191004
  Serious: Yes (Other)
  Sender: FDA-Public Use
  Company Number: ES-PURDUE PHARMA-GBR-2019-0068570

PATIENT
  Sex: Female

DRUGS (9)
  1. DEXAMETHASONE. [Suspect]
     Active Substance: DEXAMETHASONE
     Indication: PAIN
     Dosage: UNK (UNKNOWN)
     Route: 065
     Dates: start: 2015
  2. KETAMINE [Concomitant]
     Active Substance: KETAMINE
     Indication: PRODUCT USED FOR UNKNOWN INDICATION
     Dosage: 30 MG, DAILY
     Route: 065
     Dates: start: 2018
  3. MORPHINE SULFATE. [Suspect]
     Active Substance: MORPHINE SULFATE
     Dosage: UNK, (UNKNOWN)
     Route: 065
  4. TAPENTADOL [Suspect]
     Active Substance: TAPENTADOL
     Indication: BREAKTHROUGH PAIN
     Dosage: 150 MG, Q12H
     Route: 065
  5. PECFENT [Suspect]
     Active Substance: FENTANYL CITRATE
     Indication: BREAKTHROUGH PAIN
     Dosage: 100 MCG (1-2 RESCUES/DAY)
     Route: 045
  6. PECFENT [Suspect]
     Active Substance: FENTANYL CITRATE
     Dosage: 800 MCG, DAILY
     Route: 045
     Dates: start: 2018
  7. TAPENTADOL [Suspect]
     Active Substance: TAPENTADOL
     Dosage: 50 MG, Q12H
     Route: 065
  8. MORPHINE SULFATE. [Suspect]
     Active Substance: MORPHINE SULFATE
     Indication: PAIN
     Dosage: 100 MG, DAILY
     Route: 065
  9. PREGABALIN. [Suspect]
     Active Substance: PREGABALIN
     Indication: PAIN
     Dosage: UNKNOWN
     Route: 065
     Dates: start: 2015

REACTIONS (2)
  - Mucosal inflammation [Unknown]
  - Constipation [Unknown]

NARRATIVE: CASE EVENT DATE: 2017
